FAERS Safety Report 6889478-1 (Version None)
Quarter: 2010Q3

REPORT INFORMATION
  Report Type: 
  Country: None (occurrence: None)
  Receive Date: 20100730
  Receipt Date: 20080301
  Transmission Date: 20110219
  Serious: No
  Sender: FDA-Public Use
  Company Number: US-PFIZER INC-2008007103

PATIENT
  Age: 49 Year
  Sex: Male
  Weight: 68.9 kg

DRUGS (2)
  1. LIPITOR [Suspect]
     Indication: HYPERLIPIDAEMIA
     Route: 048
     Dates: start: 20071017, end: 20071226
  2. VIAGRA [Concomitant]
     Dosage: WHEN NEEDED
     Route: 048
     Dates: start: 20070901

REACTIONS (1)
  - LIVER FUNCTION TEST ABNORMAL [None]
